FAERS Safety Report 4642735-1 (Version None)
Quarter: 2005Q2

REPORT INFORMATION
  Report Type: 
  Country: None (occurrence: None)
  Receive Date: 20050420
  Receipt Date: 20050406
  Transmission Date: 20051028
  Serious: Yes (Death, Hospitalization, Other)
  Sender: FDA-Public Use
  Company Number: JP_050406271

PATIENT
  Age: 65 Year
  Sex: Male

DRUGS (4)
  1. PERMAX [Suspect]
     Dosage: 1500 UG DAY
  2. LEVODOPA BENSARAZIDE HYDROCHLORIDE [Concomitant]
  3. BROMOCRIPTNE [Concomitant]
  4. AMANTADINE HCL [Concomitant]

REACTIONS (15)
  - AKINESIA [None]
  - BULBAR PALSY [None]
  - CARDIO-RESPIRATORY ARREST [None]
  - DISEASE PROGRESSION [None]
  - DRUG INEFFECTIVE [None]
  - DYSPHAGIA [None]
  - GAZE PALSY [None]
  - GLIOSIS [None]
  - LOBAR PNEUMONIA [None]
  - NERVOUS SYSTEM DISORDER [None]
  - ORAL INTAKE REDUCED [None]
  - PNEUMONIA ASPIRATION [None]
  - PROGRESSIVE SUPRANUCLEAR PALSY [None]
  - RESUSCITATION [None]
  - WEIGHT DECREASED [None]
